FAERS Safety Report 19980467 (Version 2)
Quarter: 2021Q4

REPORT INFORMATION
  Report Type: Other
  Country: US (occurrence: None)
  Receive Date: 20211022
  Receipt Date: 20211229
  Transmission Date: 20220303
  Serious: Yes (Death)
  Sender: FDA-Public Use
  Company Number: US-ROCHE-2938853

PATIENT
  Sex: Male

DRUGS (5)
  1. OCREVUS [Suspect]
     Active Substance: OCRELIZUMAB
     Indication: Multiple sclerosis
     Dosage: ON DAY 1 AND DAY 15 THEN 600 MG EVERY 180 DAYS (6 MONTHS); NEXT TREATMENT ON 26-JUN-2020
     Route: 065
     Dates: start: 201901
  2. RITUXAN [Suspect]
     Active Substance: RITUXIMAB
     Indication: Multiple sclerosis
     Route: 065
     Dates: start: 20191220, end: 20200103
  3. DEXAMETHASONE [Concomitant]
     Active Substance: DEXAMETHASONE
  4. REMDESIVIR [Concomitant]
     Active Substance: REMDESIVIR
  5. TOCILIZUMAB [Concomitant]
     Active Substance: TOCILIZUMAB
     Route: 065

REACTIONS (2)
  - COVID-19 [Fatal]
  - Off label use [Unknown]
